FAERS Safety Report 6748581-7 (Version None)
Quarter: 2010Q2

REPORT INFORMATION
  Report Type: 
  Country: None (occurrence: None)
  Receive Date: 20100601
  Receipt Date: 20100514
  Transmission Date: 20101027
  Serious: Yes (Other)
  Sender: FDA-Public Use
  Company Number: US-BAYER-201012996NA

PATIENT
  Age: 21 Year
  Sex: Female
  Weight: 119 kg

DRUGS (16)
  1. YAZ [Suspect]
     Indication: ORAL CONTRACEPTION
     Route: 048
     Dates: start: 20050101, end: 20090101
  2. ACTOPLUS MET [Concomitant]
  3. ZOLPIDEM [Concomitant]
  4. CITALOPRAM HYDROBROMIDE [Concomitant]
  5. SULFA/TRIMETH DS [Concomitant]
  6. CLINDAMYCIN [Concomitant]
  7. NAPROXEN [Concomitant]
  8. RISAQUAD [Concomitant]
  9. CLOTRIM [Concomitant]
  10. TERCONAZOLE [Concomitant]
  11. METFORMIN HCL [Concomitant]
  12. CIPROFLOXACIN [Concomitant]
  13. FLUCONAZOLE [Concomitant]
  14. PHENAZOPYRIDINE HCL TAB [Concomitant]
  15. GLUCOPHAGE [Concomitant]
  16. MINOCYCLINE HCL [Concomitant]

REACTIONS (7)
  - ABDOMINAL PAIN UPPER [None]
  - CHOLECYSTITIS CHRONIC [None]
  - DIARRHOEA [None]
  - GALLBLADDER CHOLESTEROLOSIS [None]
  - MENTAL DISORDER [None]
  - NAUSEA [None]
  - VOMITING [None]
